FAERS Safety Report 15928197 (Version 1)
Quarter: 2019Q1

REPORT INFORMATION
  Report Type: Spontaneous
  Country: CN (occurrence: CN)
  Receive Date: 20190206
  Receipt Date: 20190206
  Transmission Date: 20190417
  Serious: Yes (Hospitalization)
  Sender: FDA-Public Use
  Company Number: CN-ASTRAZENECA-2019SE20173

PATIENT
  Age: 21216 Day
  Sex: Male
  Weight: 61 kg

DRUGS (2)
  1. BUDESONIDE. [Suspect]
     Active Substance: BUDESONIDE
     Indication: BRONCHITIS
     Route: 045
     Dates: start: 20181127, end: 20181127
  2. ACETYLCYSTEINE. [Suspect]
     Active Substance: ACETYLCYSTEINE
     Indication: BRONCHITIS
     Route: 045
     Dates: start: 20181127, end: 20181127

REACTIONS (4)
  - Blood pressure increased [Recovering/Resolving]
  - Dyspnoea [Recovering/Resolving]
  - Cyanosis [Recovering/Resolving]
  - Cold sweat [Recovering/Resolving]

NARRATIVE: CASE EVENT DATE: 20181127
